FAERS Safety Report 5810678-3 (Version None)
Quarter: 2008Q3

REPORT INFORMATION
  Report Type: 
  Country: None (occurrence: None)
  Receive Date: 20080710
  Receipt Date: 20080626
  Transmission Date: 20090109
  Serious: Yes (Hospitalization)
  Sender: FDA-Public Use
  Company Number: 2007BI021518

PATIENT
  Age: 34 Year
  Sex: Male
  Weight: 176 kg

DRUGS (2)
  1. TYSABRI [Suspect]
     Indication: MULTIPLE SCLEROSIS
     Dosage: 300 MG; QM; IV
     Route: 042
     Dates: start: 20041201, end: 20050201
  2. TYSABRI [Suspect]
     Indication: MULTIPLE SCLEROSIS
     Dosage: 300 MG; QM; IV
     Route: 042
     Dates: start: 20070901, end: 20071105

REACTIONS (4)
  - ANAPHYLACTIC SHOCK [None]
  - HALLUCINATION, VISUAL [None]
  - RHINORRHOEA [None]
  - VERTIGO [None]
